FAERS Safety Report 8603152-2 (Version None)
Quarter: 2012Q3

REPORT INFORMATION
  Report Type: 
  Country: None (occurrence: None)
  Receive Date: 20120817
  Receipt Date: 20120815
  Transmission Date: 20120928
  Serious: Yes (Hospitalization, Other)
  Sender: FDA-Public Use
  Company Number: PHHY2012BR051325

PATIENT
  Sex: Female

DRUGS (15)
  1. METFORMIN HYDROCHLORIDE [Suspect]
  2. ASPIRIN [Suspect]
     Dosage: UNK
  3. ATORVASTATIN [Suspect]
     Dosage: UNK
  4. OMEPRAZOLE [Suspect]
     Dosage: UNK
  5. DIOVAN HCT [Suspect]
     Indication: HYPERTENSION
     Dosage: 1 TABLET (320 MG VAL/125 MG HCT) TWICE A DAY
  6. TOPIRAMATE [Suspect]
     Dosage: UNK
  7. ZANTAC [Suspect]
     Dosage: UNK
  8. LOSARTAN POTASSIUM [Suspect]
     Indication: BLOOD PRESSURE
     Dosage: UNK
  9. ENALAPRIL MALEATE [Suspect]
     Dosage: UNK
  10. CLONIDINE HYDROCHLORIDE [Concomitant]
     Indication: BLOOD PRESSURE ABNORMAL
     Dosage: 1 DF, AT NIGHT
  11. SIMVASTATIN [Suspect]
     Dosage: UNK
  12. CARVEDILOL [Suspect]
     Dosage: UNK
  13. CLOPIDOGREL [Suspect]
  14. CARDIZEM [Suspect]
     Dosage: 60 MG, UNK
  15. SERTRALINE HYDROCHLORIDE [Suspect]
     Dosage: UNK

REACTIONS (13)
  - DIABETES MELLITUS [None]
  - DYSPNOEA [None]
  - WEIGHT DECREASED [None]
  - DRY MOUTH [None]
  - INSOMNIA [None]
  - OSTEOARTHRITIS [None]
  - MALAISE [None]
  - SPEECH DISORDER [None]
  - BLOOD PRESSURE INADEQUATELY CONTROLLED [None]
  - FATIGUE [None]
  - VENOUS OCCLUSION [None]
  - CHEST PAIN [None]
  - BLOOD CHOLESTEROL INCREASED [None]
